FAERS Safety Report 5655290-4 (Version None)
Quarter: 2008Q1

REPORT INFORMATION
  Report Type: 
  Country: None (occurrence: None)
  Receive Date: 20080307
  Receipt Date: 20080305
  Transmission Date: 20080703
  Serious: Yes (Other)
  Sender: FDA-Public Use
  Company Number: B0511255A

PATIENT
  Sex: Female

DRUGS (1)
  1. DILATREND [Suspect]

REACTIONS (4)
  - HYPERAESTHESIA [None]
  - PARAESTHESIA [None]
  - PERIPHERAL COLDNESS [None]
  - SENSATION OF HEAVINESS [None]
